FAERS Safety Report 24592546 (Version 3)
Quarter: 2024Q4

REPORT INFORMATION
  Report Type: Spontaneous
  Country: JP (occurrence: JP)
  Receive Date: 20241108
  Receipt Date: 20241230
  Transmission Date: 20250115
  Serious: Yes (Other)
  Sender: MERCK
  Company Number: JP-MSD-M2024-44685

PATIENT
  Age: 6 Decade
  Sex: Male

DRUGS (4)
  1. KEYTRUDA [Suspect]
     Active Substance: PEMBROLIZUMAB
     Indication: Non-small cell lung cancer stage IV
     Dosage: 200 MILLIGRAM, Q3W
     Route: 041
     Dates: start: 202407, end: 2024
  2. KEYTRUDA [Suspect]
     Active Substance: PEMBROLIZUMAB
     Dosage: 200 MILLIGRAM, Q3W
     Route: 041
     Dates: start: 2024
  3. ABRAXANE [Concomitant]
     Active Substance: PACLITAXEL
     Indication: Non-small cell lung cancer stage IV
     Dosage: UNK
     Route: 065
     Dates: start: 202407, end: 2024
  4. CARBOPLATIN [Concomitant]
     Active Substance: CARBOPLATIN
     Indication: Non-small cell lung cancer stage IV
     Dosage: UNK
     Route: 065
     Dates: start: 202407, end: 2024

REACTIONS (1)
  - Sialoadenitis [Recovered/Resolved]

NARRATIVE: CASE EVENT DATE: 20241001
